FAERS Safety Report 5151290-1 (Version None)
Quarter: 2006Q4

REPORT INFORMATION
  Report Type: 
  Country: None (occurrence: None)
  Receive Date: 20061113
  Receipt Date: 20061113
  Transmission Date: 20070319
  Serious: Yes (Hospitalization)
  Sender: FDA-Public Use
  Company Number: None

PATIENT
  Age: 79 Year
  Sex: Male
  Weight: 65.2 kg

DRUGS (1)
  1. TYGACIL [Suspect]
     Indication: CELLULITIS
     Dosage: IV 50 MG Q 12 H
     Route: 042
     Dates: start: 20061013, end: 20061022

REACTIONS (1)
  - PANCREATITIS ACUTE [None]
